FAERS Safety Report 13705243 (Version 1)
Quarter: 2017Q2

REPORT INFORMATION
  Report Type: Spontaneous
  Country: MY (occurrence: MY)
  Receive Date: 20170630
  Receipt Date: 20170630
  Transmission Date: 20170830
  Serious: Yes (Hospitalization, Other)
  Sender: FDA-Public Use
  Company Number: MY-AXELLIA-001118

PATIENT
  Age: 23 Year
  Sex: Male
  Weight: 75 kg

DRUGS (6)
  1. VANCOMYCIN [Suspect]
     Active Substance: VANCOMYCIN
     Indication: STAPHYLOCOCCAL INFECTION
     Dosage: HIGH DOSE: 53.33 MG/KG/DAY THEN 26.67 AND 40
     Route: 042
  2. AMLODIPINE [Concomitant]
     Active Substance: AMLODIPINE BESYLATE
  3. CAPTOPRIL. [Suspect]
     Active Substance: CAPTOPRIL
     Indication: HYPERTENSION
  4. BACLOFEN. [Concomitant]
     Active Substance: BACLOFEN
  5. ENOXAPARIN [Concomitant]
     Active Substance: ENOXAPARIN
     Route: 058
  6. ACETYLCYSTEINE. [Concomitant]
     Active Substance: ACETYLCYSTEINE

REACTIONS (2)
  - Drug level increased [Recovered/Resolved]
  - Acute kidney injury [Recovered/Resolved]
